FAERS Safety Report 13865334 (Version 1)
Quarter: 2017Q3

REPORT INFORMATION
  Report Type: Spontaneous
  Country: IN (occurrence: IN)
  Receive Date: 20170814
  Receipt Date: 20170814
  Transmission Date: 20171127
  Serious: Yes (Hospitalization)
  Sender: FDA-Public Use
  Company Number: IN-EDENBRIDGE PHARMACEUTICALS, LLC-IN-2017EDE000146

PATIENT
  Age: 38 Year
  Sex: Male

DRUGS (1)
  1. PREDNISOLONE SODIUM PHOSPHATE. [Suspect]
     Active Substance: PREDNISOLONE SODIUM PHOSPHATE
     Indication: LEPROMATOUS LEPROSY
     Dosage: 20-40 MG/DAY
     Route: 048

REACTIONS (3)
  - Hyperchromic anaemia [Recovered/Resolved]
  - Strongyloidiasis [Recovered/Resolved]
  - Generalised oedema [Recovered/Resolved]
